FAERS Safety Report 9315894 (Version 2)
Quarter: 2013Q2

REPORT INFORMATION
  Report Type: Spontaneous
  Country: US (occurrence: US)
  Receive Date: 20130530
  Receipt Date: 20130606
  Transmission Date: 20140414
  Serious: Yes (Other)
  Sender: FDA-Public Use
  Company Number: US-AMGEN-USASP2013037523

PATIENT
  Age: 53 Year
  Sex: Female

DRUGS (1)
  1. ENBREL [Suspect]
     Indication: RHEUMATOID ARTHRITIS
     Dosage: 50 MG, QWK
     Dates: start: 20130324

REACTIONS (9)
  - Thyroid disorder [Not Recovered/Not Resolved]
  - Neoplasm [Not Recovered/Not Resolved]
  - Tumour pain [Recovering/Resolving]
  - Pain in extremity [Recovering/Resolving]
  - Arthralgia [Not Recovered/Not Resolved]
  - Back pain [Recovering/Resolving]
  - Neuralgia [Recovering/Resolving]
  - Granuloma [Not Recovered/Not Resolved]
  - Herpes zoster [Not Recovered/Not Resolved]
